FAERS Safety Report 5591273-0 (Version None)
Quarter: 2008Q1

REPORT INFORMATION
  Report Type: 
  Country: None (occurrence: None)
  Receive Date: 20080110
  Receipt Date: 20080110
  Transmission Date: 20080703
  Serious: Yes (Other)
  Sender: FDA-Public Use
  Company Number: None

PATIENT
  Age: 50 Year
  Sex: Female
  Weight: 68.9467 kg

DRUGS (1)
  1. CHANTIX [Suspect]
     Indication: SMOKING CESSATION THERAPY
     Dates: start: 20070825, end: 20071108

REACTIONS (14)
  - ANXIETY [None]
  - CONFUSIONAL STATE [None]
  - DEPRESSION [None]
  - EMOTIONAL DISORDER [None]
  - FLIGHT OF IDEAS [None]
  - IMPAIRED WORK ABILITY [None]
  - MANIA [None]
  - MENOPAUSAL SYMPTOMS [None]
  - PANIC ATTACK [None]
  - PERSONALITY CHANGE [None]
  - SLEEP DISORDER [None]
  - THINKING ABNORMAL [None]
  - WITHDRAWAL SYNDROME [None]
  - WRONG TECHNIQUE IN DRUG USAGE PROCESS [None]
